FAERS Safety Report 8419071-0 (Version None)
Quarter: 2012Q2

REPORT INFORMATION
  Report Type: 
  Country: None (occurrence: None)
  Receive Date: 20120607
  Receipt Date: 20120605
  Transmission Date: 20120825
  Serious: Yes (Other)
  Sender: FDA-Public Use
  Company Number: PHEH2004US11591

PATIENT
  Sex: Female
  Weight: 80.272 kg

DRUGS (55)
  1. AREDIA [Suspect]
     Indication: METASTASES TO BONE
     Dosage: 90 MG, UNK
     Dates: start: 20000421, end: 20020216
  2. OXYCONTIN [Concomitant]
     Indication: PAIN
     Dosage: 20 MG, BID
  3. LASIX [Concomitant]
     Dosage: 40 MG, BID
  4. TAXOL [Concomitant]
     Indication: METASTASIS
     Dates: start: 20000421, end: 20000818
  5. TAXOTERE [Concomitant]
     Indication: BREAST CANCER
     Dosage: 75 MG/M2, UNK
     Route: 042
     Dates: start: 19990801, end: 20000818
  6. PREDNISONE [Concomitant]
     Dosage: 5 MG, POST TAXOL INFUSION
  7. VITAMIN B COMPLEX CAP [Concomitant]
  8. XANAX [Concomitant]
     Indication: DEPRESSION
  9. CIMETIDINE [Concomitant]
     Dates: start: 20000623
  10. VACCINE BREAST CANCER PROTOCOL [Concomitant]
  11. LISINOPRIL [Concomitant]
  12. RADIATION THERAPY [Concomitant]
  13. CHLORHEXIDINE GLUCONATE [Concomitant]
  14. KYTRIL [Concomitant]
  15. POTASSIUM CHLORIDE [Concomitant]
     Dosage: 20 MEQ, BID
  16. TYLENOL W/ CODEINE [Concomitant]
     Indication: PAIN
  17. PROMETHAZINE [Concomitant]
  18. PREVACID [Concomitant]
     Dosage: 30 MG, QHS
     Route: 048
  19. LOTENSIN [Concomitant]
     Dosage: 20 MG, QD
  20. HERCEPTIN [Concomitant]
     Dosage: 4 MG/KG, LOADING DOSE
     Dates: start: 19990801
  21. ALBUTEROL [Concomitant]
  22. TRAZODONE HCL [Concomitant]
  23. METRONIDAZOLE [Concomitant]
  24. ACETAMINOPHEN AND HYDROCODONE BITARTRATE [Concomitant]
  25. COMPAZINE [Concomitant]
  26. ZOMETA [Suspect]
     Dosage: UNK UKN, QW3
     Dates: start: 20040801
  27. BENADRYL [Concomitant]
     Dates: start: 20000623
  28. KEFLEX [Concomitant]
  29. ASCORBIC ACID [Concomitant]
  30. LEVAQUIN [Concomitant]
  31. SIMVASTATIN [Concomitant]
  32. ZOMETA [Suspect]
     Dosage: 4 MG, Q3W
     Dates: start: 20040225, end: 20050413
  33. NAVELBINE [Concomitant]
     Dosage: 30MG/M2 UNKDAY1,8
     Dates: start: 20030129, end: 20040204
  34. MINERALS NOS [Concomitant]
  35. COUMADIN [Concomitant]
     Dosage: UNK UKN, QD
     Route: 048
     Dates: start: 20051019
  36. DYAZIDE [Concomitant]
     Indication: OEDEMA
     Dosage: UNK UKN, QD
  37. ZOMETA [Suspect]
     Indication: METASTASES TO BONE
     Dosage: 4 MG, QMO
     Dates: start: 20010101
  38. ZOMETA [Suspect]
     Dosage: 4 MG, QW
     Dates: start: 20030129
  39. CELEXA [Concomitant]
     Indication: DEPRESSION
     Dosage: 20 MG, QD
  40. HERCEPTIN [Concomitant]
     Dosage: 2 MG/KG, EVERY WEEK
  41. ADVAIR DISKUS 100/50 [Concomitant]
  42. CEPHALEXIN [Concomitant]
  43. FEMARA [Concomitant]
     Dosage: 2.5 MG, QD
     Dates: start: 20000915, end: 20030129
  44. CELEBREX [Concomitant]
  45. ZYBAN [Concomitant]
  46. HERCEPTIN [Concomitant]
  47. HYDROCODONE [Concomitant]
  48. WARFARIN SODIUM [Concomitant]
  49. CYMBALTA [Concomitant]
  50. BUPROPRION HCL [Concomitant]
  51. DEXAMETHASONE [Concomitant]
  52. FASLODEX [Concomitant]
     Dosage: 250 MG, UNK
     Route: 030
  53. HEPARIN [Concomitant]
  54. CALCIUM W/VITAMIN D NOS [Concomitant]
  55. CHEMOTHERAPEUTICS [Concomitant]

REACTIONS (75)
  - BONE DISORDER [None]
  - GINGIVAL DISORDER [None]
  - ERYTHEMA [None]
  - HYPERPLASIA [None]
  - PLEURAL EFFUSION [None]
  - METASTASES TO BONE MARROW [None]
  - CARDIOMEGALY [None]
  - ATELECTASIS [None]
  - BURSITIS [None]
  - AORTIC ARTERIOSCLEROSIS [None]
  - VITAMIN D DEFICIENCY [None]
  - C-REACTIVE PROTEIN INCREASED [None]
  - CARDIOTOXICITY [None]
  - ANXIETY [None]
  - VOMITING [None]
  - OSTEOARTHRITIS [None]
  - SINUSITIS [None]
  - IMPLANT SITE THROMBOSIS [None]
  - OSTEOMYELITIS [None]
  - HAEMORRHAGE [None]
  - ANAEMIA [None]
  - ROTATOR CUFF SYNDROME [None]
  - NAUSEA [None]
  - LEFT ATRIAL DILATATION [None]
  - KYPHOSIS [None]
  - COMPRESSION FRACTURE [None]
  - DIASTOLIC DYSFUNCTION [None]
  - GINGIVAL RECESSION [None]
  - SWELLING [None]
  - BONE LESION [None]
  - METASTASES TO LUNG [None]
  - FALL [None]
  - CAPILLARY LEAK SYNDROME [None]
  - EJECTION FRACTION ABNORMAL [None]
  - TRICUSPID VALVE INCOMPETENCE [None]
  - GLIOSIS [None]
  - TRISMUS [None]
  - PAIN [None]
  - BONE SWELLING [None]
  - OSTEITIS DEFORMANS [None]
  - FAMILY STRESS [None]
  - RED BLOOD CELL SEDIMENTATION RATE INCREASED [None]
  - HEART RATE DECREASED [None]
  - HEPATIC CYST [None]
  - GLOMERULAR FILTRATION RATE ABNORMAL [None]
  - INTERVERTEBRAL DISC DEGENERATION [None]
  - ORAL DISORDER [None]
  - PRIMARY SEQUESTRUM [None]
  - PATHOLOGICAL FRACTURE [None]
  - IMPAIRED HEALING [None]
  - METASTASES TO BONE [None]
  - DYSPHAGIA [None]
  - SINUS TACHYCARDIA [None]
  - NEOPLASM MALIGNANT [None]
  - RENAL FAILURE CHRONIC [None]
  - TOOTH DISORDER [None]
  - BONE ABSCESS [None]
  - METASTASES TO SPINE [None]
  - BLOOD CREATININE INCREASED [None]
  - EXOSTOSIS [None]
  - VENTRICULAR HYPOKINESIA [None]
  - HAEMORRHOIDS [None]
  - MITRAL VALVE INCOMPETENCE [None]
  - HYPERCHOLESTEROLAEMIA [None]
  - COMPUTERISED TOMOGRAM CORONARY ARTERY ABNORMAL [None]
  - PERICARDIAL EFFUSION [None]
  - OSTEONECROSIS OF JAW [None]
  - PAIN IN JAW [None]
  - INFECTION [None]
  - INFLAMMATION [None]
  - GASTROOESOPHAGEAL REFLUX DISEASE [None]
  - OBESITY [None]
  - DEPRESSED MOOD [None]
  - DIARRHOEA [None]
  - UPPER RESPIRATORY TRACT INFECTION [None]
